FAERS Safety Report 9993902 (Version 1)
Quarter: 2014Q1

REPORT INFORMATION
  Report Type: Spontaneous
  Country: US (occurrence: US)
  Receive Date: 20140310
  Receipt Date: 20140310
  Transmission Date: 20141002
  Serious: No
  Sender: FDA-Public Use
  Company Number: US-AMGEN-USASP2013070454

PATIENT
  Age: 64 Year
  Sex: Male

DRUGS (4)
  1. SENSIPAR [Suspect]
     Indication: HYPERPARATHYROIDISM SECONDARY
     Dosage: UNK
     Route: 048
     Dates: start: 20130925
  2. LASIX                              /00032601/ [Concomitant]
     Dosage: UNK
     Route: 065
  3. CALCITRIOL [Concomitant]
     Dosage: UNK
     Route: 065
  4. HEPARIN [Concomitant]
     Dosage: UNK
     Route: 065

REACTIONS (5)
  - Abdominal discomfort [Unknown]
  - Heart rate decreased [Unknown]
  - Flatulence [Unknown]
  - Constipation [Unknown]
  - Dyspnoea [Unknown]
